FAERS Safety Report 23602748 (Version 1)
Quarter: 2024Q1

REPORT INFORMATION
  Report Type: Spontaneous
  Country: CN (occurrence: CN)
  Receive Date: 20240306
  Receipt Date: 20240306
  Transmission Date: 20240410
  Serious: Yes (Hospitalization, Other)
  Sender: FDA-Public Use
  Company Number: CN-009507513-2403CHN000136

PATIENT
  Age: 53 Year
  Sex: Female
  Weight: 58 kg

DRUGS (3)
  1. KEYTRUDA [Suspect]
     Active Substance: PEMBROLIZUMAB
     Indication: Rectal cancer
     Dosage: 200 MILLIGRAM, ONCE
     Route: 041
     Dates: start: 20240206, end: 20240206
  2. OXALIPLATIN [Suspect]
     Active Substance: OXALIPLATIN
     Indication: Rectal cancer
     Dosage: 200 MILLIGRAM, ONCE
     Route: 041
     Dates: start: 20240206, end: 20240206
  3. CAPECITABINE [Suspect]
     Active Substance: CAPECITABINE
     Indication: Rectal cancer
     Dosage: 1.5 GRAM, BID
     Route: 048
     Dates: start: 20240206, end: 20240219

REACTIONS (6)
  - Myelosuppression [Unknown]
  - Cerebral ischaemia [Unknown]
  - Hypoalbuminaemia [Unknown]
  - Diarrhoea [Recovering/Resolving]
  - Anaemia [Unknown]
  - Electrolyte imbalance [Unknown]

NARRATIVE: CASE EVENT DATE: 20240201
